FAERS Safety Report 25807510 (Version 1)
Quarter: 2025Q3

REPORT INFORMATION
  Report Type: Spontaneous
  Country: US (occurrence: None)
  Receive Date: 20250916
  Receipt Date: 20250916
  Transmission Date: 20251021
  Serious: No
  Sender: FDA-CTU
  Company Number: None

PATIENT
  Age: 72 Year
  Sex: Female

DRUGS (1)
  1. HUMIRA [Suspect]
     Active Substance: ADALIMUMAB
     Indication: Rheumatoid arthritis
     Dosage: OTHER STRENGTH : 40 MG/0.4ML ;?FREQUENCY : EVERY OTHER WEEK;?
     Route: 058
     Dates: start: 202507

REACTIONS (1)
  - COVID-19 [None]
